FAERS Safety Report 17325527 (Version 1)
Quarter: 2020Q1

REPORT INFORMATION
  Report Type: Report from Study
  Country: US (occurrence: US)
  Receive Date: 20200127
  Receipt Date: 20200127
  Transmission Date: 20200409
  Serious: Yes (Other)
  Sender: FDA-Public Use
  Company Number: US-PFIZER INC-2020036745

PATIENT
  Age: 63 Year
  Sex: Female

DRUGS (1)
  1. IBRANCE [Suspect]
     Active Substance: PALBOCICLIB
     Indication: BREAST CANCER FEMALE
     Dosage: 125 MG, CYCLIC (125MG X21 DAYS, THEN 7 DAYS OFF)
     Route: 048
     Dates: start: 201903

REACTIONS (9)
  - Anaemia [Unknown]
  - Trichorrhexis [Unknown]
  - Fatigue [Unknown]
  - Vomiting [Recovered/Resolved]
  - Hot flush [Unknown]
  - Dry skin [Unknown]
  - Renal impairment [Unknown]
  - Diarrhoea [Recovered/Resolved]
  - Hair texture abnormal [Unknown]

NARRATIVE: CASE EVENT DATE: 201909
